FAERS Safety Report 4479420-5 (Version None)
Quarter: 2004Q4

REPORT INFORMATION
  Report Type: 
  Country: None (occurrence: None)
  Receive Date: 20041015
  Receipt Date: 20040930
  Transmission Date: 20050328
  Serious: Yes (Life-Threatening, Hospitalization)
  Sender: FDA-Public Use
  Company Number: 2004-0007566

PATIENT
  Age: 38 Year
  Sex: Male

DRUGS (1)
  1. EMTRIVA [Suspect]
     Indication: HIV INFECTION
     Dosage: 200 MG, ORAL
     Route: 048

REACTIONS (1)
  - PANCREATITIS NECROTISING [None]
